FAERS Safety Report 5022432-3 (Version None)
Quarter: 2006Q2

REPORT INFORMATION
  Report Type: 
  Country: None (occurrence: None)
  Receive Date: 20060609
  Receipt Date: 20041001
  Transmission Date: 20061013
  Serious: Yes (Hospitalization, Disabling)
  Sender: FDA-Public Use
  Company Number: US-ROCHE-382207

PATIENT
  Age: 28 Year
  Sex: Male
  Weight: 81.6 kg

DRUGS (1)
  1. ACCUTANE [Suspect]
     Route: 048
     Dates: start: 19851122, end: 19860624

REACTIONS (26)
  - ALCOHOLISM [None]
  - CELLULITIS [None]
  - COLITIS ULCERATIVE [None]
  - CONTUSION [None]
  - CONVULSION [None]
  - CROHN'S DISEASE [None]
  - ELECTROENCEPHALOGRAM ABNORMAL [None]
  - FALL [None]
  - GASTROOESOPHAGEAL REFLUX DISEASE [None]
  - HEADACHE [None]
  - HEPATIC STEATOSIS [None]
  - INTESTINAL HAEMORRHAGE [None]
  - LETHARGY [None]
  - LOSS OF CONSCIOUSNESS [None]
  - METATARSALGIA [None]
  - OSTEOPENIA [None]
  - PAIN IN EXTREMITY [None]
  - POLLAKIURIA [None]
  - RECTAL HAEMORRHAGE [None]
  - RHEUMATOID ARTHRITIS [None]
  - SINUSITIS [None]
  - SOMNOLENCE [None]
  - THIRST [None]
  - TONGUE GEOGRAPHIC [None]
  - VARICOSE VEIN [None]
  - WEIGHT DECREASED [None]
